FAERS Safety Report 5720392-0 (Version None)
Quarter: 2008Q2

REPORT INFORMATION
  Report Type: 
  Country: None (occurrence: None)
  Receive Date: 20080428
  Receipt Date: 20080421
  Transmission Date: 20081010
  Serious: Yes (Hospitalization)
  Sender: FDA-Public Use
  Company Number: US-BOEHRINGER INGELHEIM GMBH, GERMANY-2008-BP-05273BP

PATIENT
  Sex: Female

DRUGS (12)
  1. SPIRIVA [Suspect]
     Indication: CHRONIC OBSTRUCTIVE PULMONARY DISEASE
     Route: 055
     Dates: start: 20070901
  2. SPIRIVA [Suspect]
     Indication: EMPHYSEMA
  3. SPIRIVA [Suspect]
     Indication: ASTHMA
  4. SPIRIVA [Suspect]
     Indication: BRONCHITIS CHRONIC
  5. SPIRIVA [Suspect]
     Indication: DYSPNOEA
  6. ALBUTEROL SULFATE [Concomitant]
     Indication: DYSPNOEA
  7. ATROVENT HFA [Concomitant]
     Indication: DYSPNOEA
  8. ADVAIR DISKUS 100/50 [Concomitant]
     Indication: DYSPNOEA
  9. ALBUTEROL WITH IPRATROPIUM BROMIDE [Concomitant]
  10. SINGULAIR [Concomitant]
  11. FOSAMAX [Concomitant]
  12. RHINOCORT [Concomitant]

REACTIONS (2)
  - ADVERSE DRUG REACTION [None]
  - PNEUMONIA [None]
